FAERS Safety Report 20622137 (Version 2)
Quarter: 2022Q1

REPORT INFORMATION
  Report Type: Spontaneous
  Country: US (occurrence: None)
  Receive Date: 20220322
  Receipt Date: 20220323
  Transmission Date: 20220423
  Serious: Yes (Death)
  Sender: FDA-Public Use
  Company Number: US-ROCHE-3053778

PATIENT
  Age: 92 Year
  Sex: Male

DRUGS (1)
  1. ERIVEDGE [Suspect]
     Active Substance: VISMODEGIB
     Indication: Basal cell carcinoma
     Dosage: DAILY
     Route: 048
     Dates: start: 20171115

REACTIONS (1)
  - Death [Fatal]

NARRATIVE: CASE EVENT DATE: 20220308
